FAERS Safety Report 4763389-X (Version None)
Quarter: 2005Q3

REPORT INFORMATION
  Report Type: 
  Country: None (occurrence: None)
  Receive Date: 20050908
  Receipt Date: 20050808
  Transmission Date: 20060218
  Serious: Yes (Other)
  Sender: FDA-Public Use
  Company Number: US-BRISTOL-MYERS SQUIBB COMPANY-13067624

PATIENT
  Age: 35 Year
  Sex: Female

DRUGS (6)
  1. ERBITUX [Suspect]
     Indication: COLORECTAL CANCER METASTATIC
     Route: 041
     Dates: start: 20050803, end: 20050803
  2. BENADRYL [Concomitant]
     Indication: PREMEDICATION
     Route: 042
     Dates: start: 20050803, end: 20050803
  3. COMPAZINE [Concomitant]
  4. COUMADIN [Concomitant]
  5. LEXAPRO [Concomitant]
  6. LORTAB [Concomitant]

REACTIONS (2)
  - HYPERSENSITIVITY [None]
  - POSTURING [None]
